FAERS Safety Report 9309561 (Version 2)
Quarter: 2014Q2

REPORT INFORMATION
  Report Type: Spontaneous
  Country: US (occurrence: US)
  Receive Date: 20130525
  Receipt Date: 20140510
  Transmission Date: 20141212
  Serious: No
  Sender: FDA-Public Use
  Company Number: US-BRISTOL-MYERS SQUIBB COMPANY-17462599

PATIENT
  Sex: Female

DRUGS (3)
  1. BYDUREON [Suspect]
     Indication: TYPE 2 DIABETES MELLITUS
     Dosage: LONG ACTIONG RELEASE 2MG,LAST THERAPY ON MAR13
     Route: 058
     Dates: start: 201301
  2. ACTOS [Concomitant]
  3. METFORMIN [Concomitant]

REACTIONS (3)
  - Injection site haemorrhage [Recovered/Resolved]
  - Drug dose omission [Unknown]
  - Product quality issue [Unknown]
